FAERS Safety Report 12286269 (Version 1)
Quarter: 2016Q2

REPORT INFORMATION
  Report Type: Spontaneous
  Country: US (occurrence: None)
  Receive Date: 20160419
  Receipt Date: 20160419
  Transmission Date: 20160815
  Serious: No
  Sender: FDA-Public Use
  Company Number: DL2016-0161

PATIENT
  Age: 24 Year
  Sex: Female

DRUGS (4)
  1. MIFEPRISTONE TABLETS, 200 MG (DANCO LABS) [Suspect]
     Active Substance: MIFEPRISTONE
     Indication: ABORTION INDUCED
     Route: 048
     Dates: start: 20160201
  2. MISOPROSTOL TABLETS, 200 MCG [Suspect]
     Active Substance: MISOPROSTOL
     Route: 002
     Dates: start: 20160202
  3. AZITHROMYCIN 1 GRAM [Concomitant]
  4. FLAGYL [Concomitant]
     Active Substance: METRONIDAZOLE\METRONIDAZOLE HYDROCHLORIDE

REACTIONS (1)
  - Abortion incomplete [None]

NARRATIVE: CASE EVENT DATE: 20160223
